FAERS Safety Report 4623119-9 (Version None)
Quarter: 2005Q1

REPORT INFORMATION
  Report Type: 
  Country: None (occurrence: None)
  Receive Date: 20050328
  Receipt Date: 20050328
  Transmission Date: 20050727
  Serious: No
  Sender: FDA-Public Use
  Company Number: None

PATIENT
  Age: 81 Year
  Sex: Male
  Weight: 68.9467 kg

DRUGS (2)
  1. LINEZOLID    600MG/300ML [Suspect]
     Indication: ENDOCARDITIS
     Dosage: 600MG    Q 12 H    INTRAVENOU
     Route: 042
     Dates: start: 20040727, end: 20040809
  2. LINEZOLID    600MG/300ML [Suspect]
     Indication: ENTEROCOCCAL INFECTION
     Dosage: 600MG    Q 12 H    INTRAVENOU
     Route: 042
     Dates: start: 20040727, end: 20040809

REACTIONS (6)
  - ENDOCARDITIS [None]
  - ENTEROCOCCAL INFECTION [None]
  - MENTAL STATUS CHANGES [None]
  - RENAL FAILURE ACUTE [None]
  - THROMBOCYTOPENIA [None]
  - UROSEPSIS [None]
